FAERS Safety Report 5897518-1 (Version None)
Quarter: 2008Q3

REPORT INFORMATION
  Report Type: 
  Country: None (occurrence: None)
  Receive Date: 20080924
  Receipt Date: 20080924
  Transmission Date: 20090109
  Serious: No
  Sender: FDA-Public Use
  Company Number: None

PATIENT
  Age: 52 Year
  Sex: Male

DRUGS (4)
  1. METFORMIN HCL [Suspect]
     Dates: start: 20061001, end: 20070208
  2. GLUCOVANCE [Suspect]
     Dates: start: 20070208, end: 20070324
  3. XANAX [Concomitant]
  4. LEVEMIR/NOVOLOG INSULIN [Concomitant]

REACTIONS (2)
  - HEPATITIS [None]
  - LIVER INJURY [None]
